FAERS Safety Report 18475811 (Version 1)
Quarter: 2020Q4

REPORT INFORMATION
  Report Type: Spontaneous
  Country: FR (occurrence: FR)
  Receive Date: 20201107
  Receipt Date: 20201107
  Transmission Date: 20210114
  Serious: Yes (Life-Threatening, Hospitalization, Other)
  Sender: FDA-Public Use
  Company Number: FR-SUN PHARMACEUTICAL INDUSTRIES LTD-2020RR-266736

PATIENT
  Age: 67 Year
  Sex: Male
  Weight: 134 kg

DRUGS (2)
  1. METFORMIN [Suspect]
     Active Substance: METFORMIN HYDROCHLORIDE
     Indication: PRODUCT USED FOR UNKNOWN INDICATION
     Dosage: 20 DOSAGE FORM, IN TOTAL
     Route: 048
     Dates: start: 20201016, end: 20201016
  2. DIGOXINE NATIVELLE 0,25 MG, COMPRIME [Suspect]
     Active Substance: DIGOXIN
     Indication: PRODUCT USED FOR UNKNOWN INDICATION
     Dosage: 6.75 MILLIGRAM, IN TOTAL
     Route: 048
     Dates: start: 20201016, end: 20201016

REACTIONS (6)
  - Respiratory acidosis [Recovering/Resolving]
  - Suicide attempt [Unknown]
  - Acute respiratory failure [Recovered/Resolved]
  - Hyperkalaemia [Recovered/Resolved]
  - Tachycardia [Recovered/Resolved]
  - Cardioactive drug level increased [Recovered/Resolved]

NARRATIVE: CASE EVENT DATE: 20201016
